FAERS Safety Report 9361201 (Version 1)
Quarter: 2013Q2

REPORT INFORMATION
  Report Type: Spontaneous
  Country: US (occurrence: None)
  Receive Date: 20130618
  Receipt Date: 20130618
  Transmission Date: 20140414
  Serious: Yes (Other)
  Sender: FDA-Public Use
  Company Number: 2013P1007821

PATIENT
  Age: 19 Year
  Sex: Male

DRUGS (1)
  1. MYORISAN 40 MG [Suspect]
     Indication: ACNE
     Route: 048
     Dates: start: 20130419

REACTIONS (2)
  - Epistaxis [None]
  - Haemoptysis [None]
